FAERS Safety Report 9753780 (Version 1)
Quarter: 2013Q4

REPORT INFORMATION
  Report Type: Spontaneous
  Country: US (occurrence: None)
  Receive Date: 20131211
  Receipt Date: 20131211
  Transmission Date: 20140711
  Serious: Yes (Hospitalization)
  Sender: FDA-Public Use
  Company Number: 2059003

PATIENT
  Age: 59 Year
  Sex: Female

DRUGS (3)
  1. FENTANYL CITRATE [Suspect]
     Indication: PROCEDURAL PAIN
     Dosage: 50 UG MICROGRAMS INTRAVENOUS (NOT OTHERWISE SPECIFIED)?
     Route: 042
  2. TRAZODONE [Suspect]
     Indication: ANTIDEPRESSANT THERAPY
  3. DULOXETINE [Suspect]
     Indication: ANTIDEPRESSANT THERAPY

REACTIONS (5)
  - Serotonin syndrome [None]
  - Drug interaction [None]
  - Biopsy liver [None]
  - Procedural pain [None]
  - Chest pain [None]
